FAERS Safety Report 8370601 (Version 2)
Quarter: 2013Q1

REPORT INFORMATION
  Report Type: Report from Study
  Country: US (occurrence: US)
  Receive Date: 20120129
  Receipt Date: 20130130
  Transmission Date: 20140127
  Serious: Yes (Hospitalization)
  Sender: FDA-Public Use
  Company Number: US-ABBOTT-11P-163-0857110-00

PATIENT
  Age: 58 Year
  Sex: Female

DRUGS (12)
  1. HUMIRA 40 MG/ 0.8 ML PRE-FILLED SYRINGE [Suspect]
     Indication: PSORIATIC ARTHROPATHY
     Dates: start: 2009, end: 20110824
  2. HUMIRA 40 MG/ 0.8 ML PRE-FILLED SYRINGE [Suspect]
  3. UNNAMED INHALER MEDICATION [Concomitant]
     Indication: SMOKING CESSATION THERAPY
     Dates: start: 201109, end: 201109
  4. COUMADIN [Concomitant]
     Indication: CEREBROVASCULAR ACCIDENT PROPHYLAXIS
     Dosage: AT NIGHT
     Dates: start: 2000
  5. SIMVASTATIN [Concomitant]
     Indication: BLOOD CHOLESTEROL INCREASED
     Dosage: AT NIGHT
  6. METFORMIN [Concomitant]
     Indication: DIABETES MELLITUS
  7. BLACK COHOSH [Concomitant]
     Indication: HOT FLUSH
  8. HYDROCODONE [Concomitant]
     Indication: PAIN
  9. ASPIRIN [Concomitant]
     Indication: CEREBROVASCULAR ACCIDENT
  10. ASPIRIN [Concomitant]
     Indication: CARDIAC DISORDER
  11. IMIPRAMINE [Concomitant]
     Indication: PANIC ATTACK
     Dosage: AT NIGHT
  12. PREVACID [Concomitant]
     Indication: PROPHYLAXIS AGAINST GASTROINTESTINAL ULCER

REACTIONS (4)
  - Arthralgia [Recovering/Resolving]
  - Micturition urgency [Unknown]
  - Arthralgia [Unknown]
  - Procedural pain [Recovering/Resolving]
